FAERS Safety Report 24176977 (Version 1)
Quarter: 2024Q3

REPORT INFORMATION
  Report Type: Spontaneous
  Country: CN (occurrence: None)
  Receive Date: 20240806
  Receipt Date: 20240806
  Transmission Date: 20241016
  Serious: Yes (Hospitalization)
  Sender: ORION
  Company Number: CN-Orion Corporation ORION PHARMA-ENT 2024-0037

PATIENT
  Age: 71 Year
  Sex: Male
  Weight: 50 kg

DRUGS (4)
  1. ENTACAPONE [Suspect]
     Active Substance: ENTACAPONE
     Indication: Parkinson^s disease
     Dosage: 0.1 G
     Dates: start: 20230215, end: 20230215
  2. PRAMIPEXOLE DIHYDROCHLORIDE [Suspect]
     Active Substance: PRAMIPEXOLE DIHYDROCHLORIDE
     Indication: Parkinson^s disease
     Dates: start: 20230210, end: 20230212
  3. PRAMIPEXOLE DIHYDROCHLORIDE [Suspect]
     Active Substance: PRAMIPEXOLE DIHYDROCHLORIDE
     Dates: start: 20230214, end: 20230214
  4. BENSERAZIDE HYDROCHLORIDE\LEVODOPA [Suspect]
     Active Substance: BENSERAZIDE HYDROCHLORIDE\LEVODOPA
     Indication: Parkinson^s disease
     Dates: start: 20230210

REACTIONS (6)
  - Nausea [Recovered/Resolved]
  - Vomiting [Recovered/Resolved]
  - Abdominal pain [Recovering/Resolving]
  - Hallucination [Recovered/Resolved]
  - Disorganised speech [Recovered/Resolved]
  - Abdominal distension [Recovering/Resolving]

NARRATIVE: CASE EVENT DATE: 20230215
